FAERS Safety Report 9264970 (Version 4)
Quarter: 2014Q1

REPORT INFORMATION
  Report Type: Spontaneous
  Country: US (occurrence: US)
  Receive Date: 20130501
  Receipt Date: 20140212
  Transmission Date: 20141002
  Serious: Yes (Life-Threatening, Other)
  Sender: FDA-Public Use
  Company Number: US-ROCHE-1215779

PATIENT
  Age: 62 Year
  Sex: Female

DRUGS (2)
  1. PEGASYS [Suspect]
     Indication: HEPATITIS C
     Route: 065
     Dates: start: 20130401
  2. COPEGUS [Suspect]
     Indication: HEPATITIS C
     Route: 065
     Dates: start: 20130401

REACTIONS (33)
  - Pericardial effusion [Unknown]
  - Chest discomfort [Unknown]
  - Dyspnoea [Not Recovered/Not Resolved]
  - Chills [Unknown]
  - Feeling cold [Unknown]
  - Cyanosis [Not Recovered/Not Resolved]
  - Bladder discomfort [Unknown]
  - Pyrexia [Unknown]
  - Platelet count decreased [Unknown]
  - White blood cell count decreased [Unknown]
  - Flank pain [Unknown]
  - Dysuria [Unknown]
  - Bladder discomfort [Unknown]
  - Malaise [Unknown]
  - Urinary tract infection [Unknown]
  - Cardiac hypertrophy [Unknown]
  - Oxygen saturation decreased [Unknown]
  - Lung disorder [Not Recovered/Not Resolved]
  - Dizziness [Unknown]
  - Chest pain [Unknown]
  - Atelectasis [Not Recovered/Not Resolved]
  - Cryoglobulinaemia [Unknown]
  - Pulmonary toxicity [Not Recovered/Not Resolved]
  - Hypersensitivity [Unknown]
  - Treatment failure [Unknown]
  - Headache [Unknown]
  - Nausea [Unknown]
  - Depression [Unknown]
  - Fatigue [Unknown]
  - Rash [Unknown]
  - Stomatitis [Unknown]
  - Hypoxia [Recovering/Resolving]
  - Cardiac disorder [Unknown]
